FAERS Safety Report 14441000 (Version 1)
Quarter: 2018Q1

REPORT INFORMATION
  Report Type: Spontaneous
  Country: FR (occurrence: FR)
  Receive Date: 20180125
  Receipt Date: 20180125
  Transmission Date: 20180509
  Serious: Yes (Hospitalization)
  Sender: FDA-Public Use
  Company Number: FR-CELGENEUS-FRA-20171107330

PATIENT
  Age: 59 Year
  Sex: Male

DRUGS (12)
  1. PREDNISONE. [Concomitant]
     Active Substance: PREDNISONE
     Dosage: REINTRODUCED
     Route: 065
  2. CYCLOPHOSPHAMIDE. [Concomitant]
     Active Substance: CYCLOPHOSPHAMIDE
     Indication: T-CELL LYMPHOMA
     Route: 065
     Dates: start: 201707
  3. HOLOXAN VP16 [Concomitant]
     Indication: T-CELL LYMPHOMA
     Route: 065
  4. ISTODAX [Suspect]
     Active Substance: ROMIDEPSIN
     Indication: T-CELL LYMPHOMA
     Route: 041
     Dates: start: 201707
  5. VINCRISTINE [Concomitant]
     Active Substance: VINCRISTINE
     Dosage: REINTRODUCED
     Route: 065
  6. TAZOCIN [Concomitant]
     Active Substance: PIPERACILLIN SODIUM\TAZOBACTAM SODIUM
     Indication: INFECTION
     Route: 065
     Dates: start: 2017, end: 2017
  7. PREDNISONE. [Concomitant]
     Active Substance: PREDNISONE
     Indication: T-CELL LYMPHOMA
     Route: 065
     Dates: start: 201707
  8. VINCRISTINE [Concomitant]
     Active Substance: VINCRISTINE
     Indication: T-CELL LYMPHOMA
     Route: 065
     Dates: start: 201707
  9. CYCLOPHOSPHAMIDE. [Concomitant]
     Active Substance: CYCLOPHOSPHAMIDE
     Dosage: REINTRODUCED
     Route: 065
  10. DOXORUBICIN [Concomitant]
     Active Substance: DOXORUBICIN
     Indication: T-CELL LYMPHOMA
     Route: 065
     Dates: start: 201707
  11. ISTODAX [Suspect]
     Active Substance: ROMIDEPSIN
     Dosage: REINTRODUCED
     Route: 041
     Dates: start: 20171005, end: 20171020
  12. DOXORUBICIN [Concomitant]
     Active Substance: DOXORUBICIN
     Dosage: REINTRODUCED
     Route: 065

REACTIONS (3)
  - Paraesthesia [Unknown]
  - Motor dysfunction [Unknown]
  - Polyneuropathy [Not Recovered/Not Resolved]
